FAERS Safety Report 22523174 (Version 2)
Quarter: 2023Q2

REPORT INFORMATION
  Report Type: Spontaneous
  Country: US (occurrence: US)
  Receive Date: 20230606
  Receipt Date: 20230613
  Transmission Date: 20230721
  Serious: Yes (Other)
  Sender: FDA-Public Use
  Company Number: ALC2023US002526

PATIENT
  Sex: Male

DRUGS (1)
  1. PATADAY ONCE DAILY RELIEF [Suspect]
     Active Substance: OLOPATADINE HYDROCHLORIDE
     Indication: Eye pruritus
     Dosage: 1 UNK
     Route: 047
     Dates: start: 20230419

REACTIONS (6)
  - Chemical burns of eye [Recovered/Resolved]
  - Chemical burn [Recovered/Resolved]
  - Chemical burn of skin [Recovered/Resolved]
  - Swelling face [Recovered/Resolved]
  - Visual impairment [Recovered/Resolved]
  - Hypersensitivity [Recovered/Resolved]
